FAERS Safety Report 8113206-5 (Version None)
Quarter: 2012Q1

REPORT INFORMATION
  Report Type: 
  Country: None (occurrence: None)
  Receive Date: 20120203
  Receipt Date: 20120123
  Transmission Date: 20120608
  Serious: Yes (Hospitalization)
  Sender: FDA-Public Use
  Company Number: PHHY2012JP006829

PATIENT
  Age: 90 Year
  Sex: Female

DRUGS (11)
  1. AMLODIPINE [Concomitant]
     Dosage: 2.5 MG, UNK
     Route: 048
     Dates: start: 20120112
  2. LANSOPRAZOLE [Concomitant]
  3. SELBEX [Concomitant]
  4. PREDNISOLONE [Concomitant]
     Dosage: 2 MG, UNK
     Dates: start: 20120112
  5. FAMVIR [Suspect]
     Indication: HERPES ZOSTER
     Dosage: 750 MG, QD
     Route: 048
     Dates: start: 20120112, end: 20120117
  6. CANDESARTAN CILEXETIL [Concomitant]
     Dosage: 8 MG, UNK
     Route: 048
  7. ETODOLAC [Concomitant]
     Dosage: 400 MG, UNK
     Route: 048
     Dates: start: 20120112
  8. VANCOMYCIN [Concomitant]
     Dosage: 10 MG, UNK
     Route: 048
     Dates: start: 20120112
  9. PREDNISOLONE [Concomitant]
     Dosage: 5 MG, UNK
     Route: 048
     Dates: start: 20120112
  10. INDAPAMIDE [Concomitant]
     Dosage: 0.5 MG, UNK
     Route: 048
  11. FAMVIR [Suspect]
     Dosage: 500 MG, QD
     Route: 048
     Dates: end: 20120117

REACTIONS (1)
  - RHABDOMYOLYSIS [None]
